FAERS Safety Report 9222631 (Version 1)
Quarter: 2013Q2

REPORT INFORMATION
  Report Type: Spontaneous
  Country: IN (occurrence: IN)
  Receive Date: 20130410
  Receipt Date: 20130410
  Transmission Date: 20140414
  Serious: Yes (Death)
  Sender: FDA-Public Use
  Company Number: IN-ROCHE-1207916

PATIENT
  Sex: Male

DRUGS (2)
  1. METALYSE [Suspect]
     Indication: MYOCARDIAL INFARCTION
     Route: 042
  2. METALYSE [Suspect]
     Indication: INTERVENTRICULAR SEPTUM RUPTURE

REACTIONS (1)
  - Shock [Fatal]
